FAERS Safety Report 12872570 (Version 2)
Quarter: 2016Q4

REPORT INFORMATION
  Report Type: Spontaneous
  Country: US (occurrence: US)
  Receive Date: 20161021
  Receipt Date: 20161229
  Transmission Date: 20170207
  Serious: Yes (Other)
  Sender: FDA-Public Use
  Company Number: US-PFIZER INC-2016491688

PATIENT
  Age: 70 Year

DRUGS (1)
  1. DEMEROL [Suspect]
     Active Substance: MEPERIDINE HYDROCHLORIDE
     Dosage: UNK
     Route: 042

REACTIONS (2)
  - Drug hypersensitivity [Unknown]
  - Hallucination [Unknown]
